FAERS Safety Report 17240129 (Version 1)
Quarter: 2020Q1

REPORT INFORMATION
  Report Type: Spontaneous
  Country: US (occurrence: US)
  Receive Date: 20200107
  Receipt Date: 20200107
  Transmission Date: 20200409
  Serious: Yes (Hospitalization, Other)
  Sender: FDA-Public Use
  Company Number: US-AUROBINDO-AUR-APL-2019-073502

PATIENT
  Age: 34 Year
  Sex: Male

DRUGS (19)
  1. QUETIAPINE. [Suspect]
     Active Substance: QUETIAPINE
     Indication: SCHIZOAFFECTIVE DISORDER BIPOLAR TYPE
  2. CARBAMAZEPINE. [Suspect]
     Active Substance: CARBAMAZEPINE
     Indication: SUBSTANCE USE DISORDER
     Dosage: UNK
     Route: 065
     Dates: start: 20080918
  3. LITHIUM. [Concomitant]
     Active Substance: LITHIUM
     Indication: SCHIZOAFFECTIVE DISORDER BIPOLAR TYPE
     Dosage: 600 MILLIGRAM, ONCE A DAY
     Route: 065
     Dates: start: 201111
  4. CARBAMAZEPINE. [Suspect]
     Active Substance: CARBAMAZEPINE
     Dosage: UNK
     Route: 065
     Dates: start: 20081129
  5. TRAZODONE [Suspect]
     Active Substance: TRAZODONE HYDROCHLORIDE
     Indication: SUBSTANCE USE DISORDER
  6. FLUPHENAZINE [Concomitant]
     Active Substance: FLUPHENAZINE
     Indication: SCHIZOAFFECTIVE DISORDER BIPOLAR TYPE
     Dosage: 10 MILLIGRAM, 3 TIMES A DAY
     Route: 048
     Dates: start: 201111
  7. TRAZODONE [Suspect]
     Active Substance: TRAZODONE HYDROCHLORIDE
     Indication: SCHIZOAFFECTIVE DISORDER BIPOLAR TYPE
     Route: 065
  8. RISPERIDONE. [Suspect]
     Active Substance: RISPERIDONE
     Dosage: UNK
     Route: 030
     Dates: start: 20081129
  9. QUETIAPINE. [Suspect]
     Active Substance: QUETIAPINE
     Indication: SCHIZOAFFECTIVE DISORDER
     Dosage: 800 MILLIGRAM, ONCE A DAY
     Route: 065
     Dates: start: 201111
  10. CARBAMAZEPINE. [Suspect]
     Active Substance: CARBAMAZEPINE
     Indication: SCHIZOAFFECTIVE DISORDER BIPOLAR TYPE
     Dosage: UNK
     Route: 065
     Dates: start: 20080911
  11. CARBAMAZEPINE. [Suspect]
     Active Substance: CARBAMAZEPINE
     Dosage: UNK
     Route: 065
     Dates: start: 20080924
  12. RISPERIDONE. [Suspect]
     Active Substance: RISPERIDONE
     Dosage: UNK
     Route: 030
     Dates: start: 20080924
  13. RISPERIDONE. [Suspect]
     Active Substance: RISPERIDONE
     Indication: SUBSTANCE USE DISORDER
     Dosage: UNK
     Route: 048
     Dates: start: 20080918
  14. RISPERIDONE. [Suspect]
     Active Substance: RISPERIDONE
     Dosage: UNK
     Route: 048
     Dates: start: 20080924
  15. RISPERIDONE. [Suspect]
     Active Substance: RISPERIDONE
     Indication: SCHIZOAFFECTIVE DISORDER BIPOLAR TYPE
     Dosage: UNK
     Route: 048
     Dates: start: 20080911
  16. CARBAMAZEPINE. [Suspect]
     Active Substance: CARBAMAZEPINE
     Dosage: UNK
  17. RISPERIDONE. [Suspect]
     Active Substance: RISPERIDONE
     Indication: SCHIZOAFFECTIVE DISORDER BIPOLAR TYPE
     Dosage: UNK
     Route: 030
     Dates: start: 20080911
  18. RISPERIDONE. [Suspect]
     Active Substance: RISPERIDONE
     Indication: SUBSTANCE USE DISORDER
     Dosage: UNK
     Route: 030
     Dates: start: 20080918
  19. RISPERIDONE. [Suspect]
     Active Substance: RISPERIDONE
     Dosage: UNK
     Route: 048
     Dates: start: 20081129

REACTIONS (2)
  - Priapism [Recovered/Resolved]
  - Fibrosis [Recovered/Resolved]

NARRATIVE: CASE EVENT DATE: 20080911
